FAERS Safety Report 5560209-0 (Version None)
Quarter: 2007Q4

REPORT INFORMATION
  Report Type: 
  Country: None (occurrence: None)
  Receive Date: 20071214
  Receipt Date: 20071029
  Transmission Date: 20080405
  Serious: No
  Sender: FDA-Public Use
  Company Number: US-ABBOTT-07P-163-0423154-00

PATIENT
  Sex: Female
  Weight: 69.008 kg

DRUGS (6)
  1. HUMIRA [Suspect]
     Indication: RHEUMATOID ARTHRITIS
     Route: 058
     Dates: start: 20061001
  2. HUMIRA [Suspect]
     Indication: RHEUMATOID ARTHRITIS
     Dates: start: 20051001, end: 20061001
  3. AMOXICILLIN [Concomitant]
     Indication: SINUSITIS
     Route: 048
     Dates: end: 20071015
  4. METHOTREXATE [Concomitant]
     Indication: RHEUMATOID ARTHRITIS
  5. OMEPRAZOLE [Concomitant]
     Indication: DRUG USE FOR UNKNOWN INDICATION
  6. HYPERTENSION (HTN) PILL [Concomitant]
     Indication: HYPERTENSION

REACTIONS (3)
  - FEELING ABNORMAL [None]
  - NERVOUSNESS [None]
  - SINUSITIS [None]
